FAERS Safety Report 6629635-2 (Version None)
Quarter: 2010Q1

REPORT INFORMATION
  Report Type: 
  Country: None (occurrence: None)
  Receive Date: 20100311
  Receipt Date: 20100224
  Transmission Date: 20100710
  Serious: Yes (Other)
  Sender: FDA-Public Use
  Company Number: US-PFIZER INC-2010024404

PATIENT
  Sex: Female

DRUGS (1)
  1. CHANTIX [Suspect]
     Dosage: UNK

REACTIONS (7)
  - ANTISOCIAL BEHAVIOUR [None]
  - DEPRESSED MOOD [None]
  - FIBROMYALGIA [None]
  - FLATULENCE [None]
  - INCORRECT DOSE ADMINISTERED [None]
  - MALAISE [None]
  - MEMORY IMPAIRMENT [None]
